FAERS Safety Report 4436966-3 (Version None)
Quarter: 2004Q3

REPORT INFORMATION
  Report Type: 
  Country: None (occurrence: None)
  Receive Date: 20040830
  Receipt Date: 20031020
  Transmission Date: 20050211
  Serious: No
  Sender: FDA-Public Use
  Company Number: US-GLAXOSMITHKLINE-A0430912A

PATIENT
  Age: 41 Year
  Sex: Female

DRUGS (11)
  1. BECONASE [Suspect]
     Dosage: 4SPR TWICE PER DAY
     Route: 045
     Dates: start: 20030922, end: 20031016
  2. VICODIN [Concomitant]
  3. ADVAIR DISKUS 100/50 [Concomitant]
  4. VASOTEC [Concomitant]
  5. NEURONTIN [Concomitant]
  6. LASIX [Concomitant]
  7. METFORMIN HCL [Concomitant]
  8. PRILOSEC [Concomitant]
  9. BEXTRA [Concomitant]
  10. ALBUTEROL [Concomitant]
  11. POTASSIUM [Concomitant]

REACTIONS (1)
  - EPISTAXIS [None]
